FAERS Safety Report 9492432 (Version 2)
Quarter: 2013Q3

REPORT INFORMATION
  Report Type: Report from Study
  Country: US (occurrence: US)
  Receive Date: 20130830
  Receipt Date: 20130919
  Transmission Date: 20140515
  Serious: Yes (Death, Hospitalization)
  Sender: FDA-Public Use
  Company Number: US-BRISTOL-MYERS SQUIBB COMPANY-19221100

PATIENT
  Age: 64 Year
  Sex: Female

DRUGS (6)
  1. IPILIMUMAB [Suspect]
     Indication: MALIGNANT MELANOMA
     Dosage: 288MG
     Route: 042
     Dates: start: 20130614, end: 20130614
  2. HUMALOG [Concomitant]
     Dosage: 1DF:75/25 UNITS NOS
     Route: 058
  3. METFORMIN [Concomitant]
     Route: 048
  4. LEVOTHYROXINE [Concomitant]
     Route: 048
  5. SIMVASTATIN [Concomitant]
     Route: 048
  6. VALSARTAN + HCTZ [Concomitant]
     Dosage: 1 DF : 160/125MG
     Route: 048

REACTIONS (3)
  - Death [Fatal]
  - Renal failure acute [Recovering/Resolving]
  - Dehydration [Recovered/Resolved]
